FAERS Safety Report 25582135 (Version 3)
Quarter: 2025Q3

REPORT INFORMATION
  Report Type: Spontaneous
  Country: CN (occurrence: CN)
  Receive Date: 20250719
  Receipt Date: 20250814
  Transmission Date: 20251021
  Serious: Yes (Other)
  Sender: RANBAXY
  Company Number: CN-SUN PHARMACEUTICAL INDUSTRIES INC-2025R1-517173

PATIENT
  Age: 55 Year
  Sex: Female

DRUGS (8)
  1. DEXAMETHASONE [Suspect]
     Active Substance: DEXAMETHASONE
     Indication: Triple hit lymphoma
     Route: 065
     Dates: start: 20240119
  2. CISPLATIN [Suspect]
     Active Substance: CISPLATIN
     Indication: Triple hit lymphoma
     Route: 065
     Dates: start: 20240119
  3. METHOTREXATE [Suspect]
     Active Substance: METHOTREXATE
     Indication: Triple hit lymphoma
     Route: 065
     Dates: start: 20240119
  4. IFOSFAMIDE [Suspect]
     Active Substance: IFOSFAMIDE
     Indication: Triple hit lymphoma
     Route: 065
     Dates: start: 20240119
  5. RITUXIMAB [Suspect]
     Active Substance: RITUXIMAB
     Indication: Triple hit lymphoma
     Route: 065
     Dates: start: 20240119
  6. ETOPOSIDE [Suspect]
     Active Substance: ETOPOSIDE
     Indication: Triple hit lymphoma
     Route: 065
     Dates: start: 20240119
  7. SELINEXOR [Suspect]
     Active Substance: SELINEXOR
     Indication: Triple hit lymphoma
     Route: 065
     Dates: start: 20240119
  8. TUCIDINOSTAT [Suspect]
     Active Substance: TUCIDINOSTAT
     Indication: Triple hit lymphoma
     Route: 065
     Dates: start: 20240119

REACTIONS (2)
  - Therapeutic response decreased [Unknown]
  - Thrombocytopenia [Recovering/Resolving]
